FAERS Safety Report 5718671-6 (Version None)
Quarter: 2008Q2

REPORT INFORMATION
  Report Type: 
  Country: None (occurrence: None)
  Receive Date: 20080425
  Receipt Date: 20080413
  Transmission Date: 20081010
  Serious: Yes (Other)
  Sender: FDA-Public Use
  Company Number: US-PFIZER INC-2008033089

PATIENT
  Sex: Female
  Weight: 86.818 kg

DRUGS (7)
  1. DETROL LA [Suspect]
     Indication: MICTURITION URGENCY
  2. CETIRIZINE HCL [Concomitant]
  3. SINGULAIR [Concomitant]
  4. NASONEX [Concomitant]
  5. PULMICORT [Concomitant]
  6. ALL OTHER THERAPEUTIC PRODUCTS [Concomitant]
  7. PREVACID [Concomitant]

REACTIONS (3)
  - DRY MOUTH [None]
  - HEART RATE INCREASED [None]
  - SOMNOLENCE [None]
